FAERS Safety Report 7331040-0 (Version None)
Quarter: 2011Q1

REPORT INFORMATION
  Report Type: 
  Country: None (occurrence: None)
  Receive Date: 20110304
  Receipt Date: 20110222
  Transmission Date: 20110831
  Serious: Yes (Other)
  Sender: FDA-Public Use
  Company Number: GB-JNJFOC-20110207123

PATIENT
  Age: 24 Year
  Sex: Male

DRUGS (16)
  1. MIRTAZAPINE [Suspect]
     Indication: DISSOCIATIVE IDENTITY DISORDER
     Route: 048
  2. PANADOL [Suspect]
     Indication: PRODUCT USED FOR UNKNOWN INDICATION
     Route: 048
  3. LACTULOSE [Concomitant]
     Route: 048
  4. IBUPROFEN [Suspect]
     Indication: PRODUCT USED FOR UNKNOWN INDICATION
     Route: 048
  5. CLOZARIL [Suspect]
     Indication: SCHIZOPHRENIA
     Route: 048
  6. CLOZARIL [Suspect]
     Route: 048
  7. PRIADEL [Suspect]
     Indication: PERSONALITY DISORDER
     Route: 048
  8. NIQUITIN CQ [Concomitant]
     Indication: SMOKING CESSATION THERAPY
     Route: 062
  9. TRUVADA [Concomitant]
  10. CLOZARIL [Suspect]
     Route: 048
  11. LITHIUM [Suspect]
     Indication: PRODUCT USED FOR UNKNOWN INDICATION
  12. KALETRA [Concomitant]
  13. PARACETAMOL [Suspect]
     Indication: PRODUCT USED FOR UNKNOWN INDICATION
     Route: 048
  14. HYOSCINE HBR HYT [Concomitant]
     Route: 048
  15. PARACETAMOL [Suspect]
     Route: 048
  16. ALCOHOL [Suspect]
     Indication: PRODUCT USED FOR UNKNOWN INDICATION
     Dosage: 4 PINTS OF LAGER

REACTIONS (2)
  - SUICIDE ATTEMPT [None]
  - MULTIPLE DRUG OVERDOSE INTENTIONAL [None]
